FAERS Safety Report 23553557 (Version 10)
Quarter: 2024Q4

REPORT INFORMATION
  Report Type: Report from Study
  Country: BR (occurrence: BR)
  Receive Date: 20240222
  Receipt Date: 20241217
  Transmission Date: 20250115
  Serious: Yes (Other)
  Sender: NOVARTIS
  Company Number: BR-002147023-NVSC2024BR005199

PATIENT
  Age: 58 Year
  Sex: Female

DRUGS (7)
  1. KISQALI [Suspect]
     Active Substance: RIBOCICLIB
     Indication: Breast cancer female
     Dosage: 3 DOSAGE FORM (3 TABLETS), QD
     Route: 065
  2. KISQALI [Suspect]
     Active Substance: RIBOCICLIB
     Dosage: UNK
     Route: 065
  3. KISQALI [Suspect]
     Active Substance: RIBOCICLIB
     Dosage: 2 DOSAGE FORM
     Route: 065
  4. KISQALI [Suspect]
     Active Substance: RIBOCICLIB
     Dosage: 3 DOSAGE FORM, QD
     Route: 065
  5. KISQALI [Suspect]
     Active Substance: RIBOCICLIB
     Dosage: 2 DOSAGE FORM, QD
     Route: 048
     Dates: start: 20241002
  6. KISQALI [Suspect]
     Active Substance: RIBOCICLIB
     Dosage: 2 DOSAGE FORM, QD
     Route: 048
     Dates: start: 20241002
  7. ANASTROZOLE [Concomitant]
     Active Substance: ANASTROZOLE
     Indication: Product used for unknown indication
     Dosage: 1 MG
     Route: 065

REACTIONS (35)
  - Choking [Unknown]
  - Decreased immune responsiveness [Recovered/Resolved]
  - Pruritus [Recovered/Resolved]
  - Dizziness [Unknown]
  - Malaise [Unknown]
  - Dyspepsia [Unknown]
  - Decreased appetite [Unknown]
  - Headache [Recovered/Resolved]
  - Skin swelling [Unknown]
  - Wound [Unknown]
  - Abdominal pain upper [Unknown]
  - Nausea [Unknown]
  - Weight increased [Unknown]
  - Tremor [Recovered/Resolved]
  - Increased appetite [Unknown]
  - Asthenia [Recovered/Resolved]
  - Memory impairment [Not Recovered/Not Resolved]
  - Dysphonia [Unknown]
  - Asthenia [Unknown]
  - Tremor [Unknown]
  - Retching [Unknown]
  - Swelling [Unknown]
  - Somnolence [Unknown]
  - Pain [Unknown]
  - Pain in extremity [Unknown]
  - Fatigue [Unknown]
  - Headache [Not Recovered/Not Resolved]
  - Abdominal discomfort [Unknown]
  - Hypophagia [Unknown]
  - Hypoacusis [Unknown]
  - Incorrect dose administered [Unknown]
  - Mass [Recovered/Resolved]
  - Decreased immune responsiveness [Unknown]
  - Irritability [Unknown]
  - Visual impairment [Unknown]

NARRATIVE: CASE EVENT DATE: 20231227
